FAERS Safety Report 7872120 (Version 3)
Quarter: 2015Q1

REPORT INFORMATION
  Report Type: Report from Study
  Country: JP (occurrence: JP)
  Receive Date: 20110325
  Receipt Date: 20150313
  Transmission Date: 20150721
  Serious: Yes (Other)
  Sender: FDA-Public Use
  Company Number: JP-PFIZER INC-2011062214

PATIENT
  Age: 44 Year
  Sex: Male

DRUGS (3)
  1. PEGVISOMANT [Suspect]
     Active Substance: PEGVISOMANT
     Dosage: 20 MG, 1X/DAY
     Dates: start: 20091216
  2. PEGVISOMANT [Suspect]
     Active Substance: PEGVISOMANT
     Dosage: 15 MG, 2X/DAY
     Dates: start: 20080904, end: 20091215
  3. PEGVISOMANT [Suspect]
     Active Substance: PEGVISOMANT
     Indication: ACROMEGALY
     Dosage: 15 MG, 1X/DAY
     Dates: start: 20080508, end: 20080903

REACTIONS (2)
  - Pituitary tumour [Not Recovered/Not Resolved]
  - Neoplasm progression [Not Recovered/Not Resolved]

NARRATIVE: CASE EVENT DATE: 200805
